FAERS Safety Report 25591818 (Version 1)
Quarter: 2025Q3

REPORT INFORMATION
  Report Type: Report from Study
  Country: US (occurrence: US)
  Receive Date: 20250722
  Receipt Date: 20250722
  Transmission Date: 20251021
  Serious: No
  Sender: VANDA PHARMACEUTICALS
  Company Number: US-VANDA PHARMACEUTICALS, INC-2024TASUS007418

PATIENT
  Sex: Male
  Weight: 11.111 kg

DRUGS (1)
  1. HETLIOZ LQ [Suspect]
     Active Substance: TASIMELTEON
     Indication: Circadian rhythm sleep disorder

REACTIONS (3)
  - Insomnia [Unknown]
  - Weight increased [Unknown]
  - Product administered to patient of inappropriate age [Unknown]
